FAERS Safety Report 18627719 (Version 1)
Quarter: 2020Q4

REPORT INFORMATION
  Report Type: Spontaneous
  Country: US (occurrence: US)
  Receive Date: 20201216
  Receipt Date: 20201216
  Transmission Date: 20210114
  Serious: Yes (Life-Threatening, Other)
  Sender: FDA-Public Use
  Company Number: None

PATIENT
  Age: 36 Year
  Weight: 119.25 kg

DRUGS (6)
  1. DESVENLAFAXINE SUCCINATE ER 50 TB24 [Suspect]
     Active Substance: DESVENLAFAXINE SUCCINATE
     Indication: DEPRESSION
     Dosage: ?          QUANTITY:1 TABLET(S);?
     Route: 048
  2. DEXTROAMPHET SACCHARAT, AMPHET ASPARTATE, DEXTROAMPHET SULFATE AND AMPHET SULFAT [Concomitant]
     Active Substance: AMPHETAMINE ASPARTATE\AMPHETAMINE SULFATE\DEXTROAMPHETAMINE SACCHARATE\DEXTROAMPHETAMINE SULFATE
  3. BUSPIRONE [Concomitant]
     Active Substance: BUSPIRONE HYDROCHLORIDE
  4. CALCIUM CARBONATE. [Concomitant]
     Active Substance: CALCIUM CARBONATE
  5. BUPROPION XL 300MG [Concomitant]
     Active Substance: BUPROPION
  6. IBUPROFEN 400-800MG [Concomitant]

REACTIONS (21)
  - Withdrawal syndrome [None]
  - Cold sweat [None]
  - Weight decreased [None]
  - Mood swings [None]
  - Tremor [None]
  - Suicidal ideation [None]
  - Anxiety [None]
  - Dysphoria [None]
  - Disturbance in sexual arousal [None]
  - Stress [None]
  - Emotional disorder [None]
  - Abdominal pain upper [None]
  - Retching [None]
  - Panic attack [None]
  - Depression [None]
  - Decreased appetite [None]
  - Sensory disturbance [None]
  - Hyperhidrosis [None]
  - Hypophagia [None]
  - Paraesthesia [None]
  - Loss of personal independence in daily activities [None]

NARRATIVE: CASE EVENT DATE: 20201021
